FAERS Safety Report 8249798-5 (Version None)
Quarter: 2012Q2

REPORT INFORMATION
  Report Type: 
  Country: None (occurrence: None)
  Receive Date: 20120402
  Receipt Date: 20120321
  Transmission Date: 20120825
  Serious: Yes (Death)
  Sender: FDA-Public Use
  Company Number: US-PAR PHARMACEUTICAL, INC-2012SCPR004206

PATIENT

DRUGS (3)
  1. DICLOFENAC SODIUM [Suspect]
     Indication: OSTEOARTHRITIS
     Dosage: UNK, QID
     Route: 061
  2. APIDRA [Concomitant]
     Indication: TYPE 2 DIABETES MELLITUS
     Dosage: 12 I.U., TID
     Route: 058
     Dates: start: 20060101
  3. CYTOMEL [Concomitant]
     Indication: HYPOTHYROIDISM
     Dosage: 5 MCG, QD
     Route: 048
     Dates: start: 20060101

REACTIONS (3)
  - DEATH [None]
  - ARTERIOSCLEROSIS [None]
  - CONDITION AGGRAVATED [None]
